FAERS Safety Report 19582638 (Version 2)
Quarter: 2021Q4

REPORT INFORMATION
  Report Type: Spontaneous
  Country: BR (occurrence: BR)
  Receive Date: 20210720
  Receipt Date: 20211025
  Transmission Date: 20220303
  Serious: Yes (Hospitalization, Other)
  Sender: FDA-Public Use
  Company Number: BR-ALVOGEN-2021-ALVOGEN-117255

PATIENT
  Age: 14336 Day
  Sex: Female
  Weight: 79 kg

DRUGS (5)
  1. ATENOLOL [Suspect]
     Active Substance: ATENOLOL
     Indication: Arrhythmia
     Route: 048
     Dates: start: 20190101, end: 2021
  2. ASTRAZENECA COVID-19 VACCINE [Suspect]
     Active Substance: AZD-1222
     Indication: Product used for unknown indication
     Dosage: FIRST DOSE
     Route: 030
  3. ACETAMINOPHEN\CODEINE PHOSPHATE [Concomitant]
     Active Substance: ACETAMINOPHEN\CODEINE PHOSPHATE
     Indication: Intracranial pressure increased
     Route: 048
     Dates: start: 20100101, end: 2021
  4. DIAMOX SEQUELS [Concomitant]
     Active Substance: ACETAZOLAMIDE
     Indication: Intracranial pressure increased
     Route: 048
     Dates: start: 20190202, end: 2021
  5. AMITRIPTYLINE HYDROCHLORIDE [Concomitant]
     Active Substance: AMITRIPTYLINE HYDROCHLORIDE
     Indication: Depression
     Dosage: 50.0MG CONTINUOUSLY
     Route: 048
     Dates: start: 20100101, end: 2021

REACTIONS (21)
  - Arrhythmia [Unknown]
  - Blister [Unknown]
  - Thrombosis [Recovering/Resolving]
  - Laryngospasm [Recovering/Resolving]
  - Dyspnoea [Recovering/Resolving]
  - Jaundice [Recovering/Resolving]
  - Vertigo [Recovering/Resolving]
  - Headache [Recovering/Resolving]
  - Pyrexia [Recovering/Resolving]
  - Nausea [Recovering/Resolving]
  - Dizziness [Recovering/Resolving]
  - Pain [Recovering/Resolving]
  - Arthralgia [Recovering/Resolving]
  - Presyncope [Recovering/Resolving]
  - Swelling [Recovering/Resolving]
  - Erythema [Recovering/Resolving]
  - Fatigue [Not Recovered/Not Resolved]
  - Hypersensitivity [Unknown]
  - Dyspnoea [Not Recovered/Not Resolved]
  - Eye pain [Unknown]
  - Chest pain [Unknown]

NARRATIVE: CASE EVENT DATE: 20210607
